FAERS Safety Report 5892915-2 (Version None)
Quarter: 2008Q3

REPORT INFORMATION
  Report Type: 
  Country: None (occurrence: None)
  Receive Date: 20080923
  Receipt Date: 20080916
  Transmission Date: 20090109
  Serious: Yes (Other)
  Sender: FDA-Public Use
  Company Number: PHHO2008BE03279

PATIENT
  Sex: Female
  Weight: 58 kg

DRUGS (2)
  1. ZOLEDRONIC ACID [Suspect]
     Indication: OSTEOPENIA
     Dosage: 4MG
     Route: 042
     Dates: start: 20080303, end: 20080303
  2. CGS 20267 T30748+TAB [Suspect]
     Indication: BREAST CANCER
     Dosage: 2.5MG
     Route: 048
     Dates: start: 20050314

REACTIONS (4)
  - MYOSITIS [None]
  - PAIN IN EXTREMITY [None]
  - SWELLING [None]
  - VEIN DISORDER [None]
